FAERS Safety Report 6119835-2 (Version None)
Quarter: 2009Q1

REPORT INFORMATION
  Report Type: 
  Country: None (occurrence: None)
  Receive Date: 20090316
  Receipt Date: 20090306
  Transmission Date: 20090719
  Serious: Yes (Other)
  Sender: FDA-Public Use
  Company Number: PHHY2009CA07293

PATIENT
  Sex: Male

DRUGS (6)
  1. DIOVAN [Suspect]
     Indication: HYPERTENSION
     Dosage: 40 MG,ONCE DAILY
     Route: 048
     Dates: start: 20090224
  2. LOZIDE [Concomitant]
  3. MAVIK [Concomitant]
     Dosage: 4 MG, ONCE DAILY
  4. ASPIRIN [Concomitant]
     Dosage: 80 ONCE DAILY
  5. GLUCOPHAGE [Concomitant]
     Dosage: 850 UNK, BID
  6. CRESTOR [Concomitant]
     Dosage: 10 UNK, ONCE DAILY

REACTIONS (3)
  - BLOOD POTASSIUM DECREASED [None]
  - BLOOD PRESSURE INADEQUATELY CONTROLLED [None]
  - DIABETES MELLITUS [None]
